FAERS Safety Report 19818522 (Version 1)
Quarter: 2021Q3

REPORT INFORMATION
  Report Type: Spontaneous
  Country: CA (occurrence: CA)
  Receive Date: 20210911
  Receipt Date: 20210911
  Transmission Date: 20211014
  Serious: Yes (Life-Threatening, Hospitalization)
  Sender: FDA-Public Use
  Company Number: CA-TEVA-2021-CA-1951009

PATIENT
  Age: 73 Year
  Sex: Male
  Weight: 82 kg

DRUGS (10)
  1. INDAPAMIDE. [Concomitant]
     Active Substance: INDAPAMIDE
  2. NYSTATIN. [Concomitant]
     Active Substance: NYSTATIN
  3. ONDANSETRON [Concomitant]
     Active Substance: ONDANSETRON
  4. CISPLATIN INJECTION [Suspect]
     Active Substance: CISPLATIN
     Indication: SQUAMOUS CELL CARCINOMA OF THE TONGUE
     Route: 042
  5. DIMENHYDRINATE. [Concomitant]
     Active Substance: DIMENHYDRINATE
  6. LORAZEPAM. [Concomitant]
     Active Substance: LORAZEPAM
  7. PERINDOPRIL [Concomitant]
     Active Substance: PERINDOPRIL
  8. GLUCOSAMINE +CHONDROITIN [Concomitant]
  9. CHOLECALCIFEROL [Concomitant]
     Active Substance: CHOLECALCIFEROL
  10. METOCLOPRAMIDE. [Concomitant]
     Active Substance: METOCLOPRAMIDE

REACTIONS (2)
  - Blood creatinine increased [Recovered/Resolved]
  - Acute kidney injury [Recovered/Resolved]
